FAERS Safety Report 12848644 (Version 1)
Quarter: 2016Q4

REPORT INFORMATION
  Report Type: Spontaneous
  Country: US (occurrence: US)
  Receive Date: 20161014
  Receipt Date: 20161014
  Transmission Date: 20170207
  Serious: No
  Sender: FDA-Public Use
  Company Number: US-JNJFOC-20160903705

PATIENT
  Age: 92 Year
  Sex: Female
  Weight: 51.71 kg

DRUGS (2)
  1. ECHINACEA [Concomitant]
     Active Substance: ECHINACEA, UNSPECIFIED
     Indication: PRODUCT USED FOR UNKNOWN INDICATION
     Route: 065
  2. TYLENOL 8 HR ARTHRITIS PAIN [Suspect]
     Active Substance: ACETAMINOPHEN
     Indication: PAIN
     Dosage: 1/2 -1 TABLET
     Route: 048
     Dates: end: 20160902

REACTIONS (3)
  - Product solubility abnormal [Unknown]
  - Intentional product misuse [Unknown]
  - Intentional underdose [Unknown]
